FAERS Safety Report 4869135-3 (Version None)
Quarter: 2005Q4

REPORT INFORMATION
  Report Type: 
  Country: None (occurrence: None)
  Receive Date: 20051228
  Receipt Date: 20051228
  Transmission Date: 20060501
  Serious: Yes (Death, Life-Threatening, Hospitalization)
  Sender: FDA-Public Use
  Company Number: None

PATIENT

DRUGS (1)
  1. ACETAMINOPHEN/DIPHENHYDRAMINE    500/25     MULTIPLE [Suspect]
     Indication: INSOMNIA
     Dosage: 2 PRN   QHS   PO
     Route: 048
     Dates: start: 20050101, end: 20051201

REACTIONS (3)
  - ACCIDENTAL OVERDOSE [None]
  - MEDICATION ERROR [None]
  - OVERDOSE [None]
